FAERS Safety Report 23369203 (Version 1)
Quarter: 2024Q1

REPORT INFORMATION
  Report Type: Report from Study
  Country: US (occurrence: None)
  Receive Date: 20240105
  Receipt Date: 20240105
  Transmission Date: 20240410
  Serious: Yes (Other)
  Sender: FDA-Public Use
  Company Number: 2024A001416

PATIENT
  Sex: Female

DRUGS (2)
  1. LYNPARZA [Suspect]
     Active Substance: OLAPARIB
     Indication: Benign breast neoplasm
     Route: 048
     Dates: start: 202312
  2. LYNPARZA [Suspect]
     Active Substance: OLAPARIB
     Indication: Benign breast neoplasm
     Route: 048
     Dates: start: 202312

REACTIONS (2)
  - Myocardial infarction [Unknown]
  - Cardiac disorder [Unknown]
